FAERS Safety Report 7196619-8 (Version None)
Quarter: 2010Q4

REPORT INFORMATION
  Report Type: 
  Country: None (occurrence: None)
  Receive Date: 20101223
  Receipt Date: 20101028
  Transmission Date: 20110411
  Serious: Yes (Other)
  Sender: FDA-Public Use
  Company Number: US-AMGEN-USASP2010002246

PATIENT
  Sex: Female

DRUGS (2)
  1. ENBREL [Suspect]
     Indication: RHEUMATOID ARTHRITIS
     Dates: start: 20100501
  2. ARAVA [Concomitant]

REACTIONS (3)
  - ABDOMINAL DISCOMFORT [None]
  - CUTANEOUS LUPUS ERYTHEMATOSUS [None]
  - DECREASED APPETITE [None]
